FAERS Safety Report 15749147 (Version 1)
Quarter: 2018Q4

REPORT INFORMATION
  Report Type: Spontaneous
  Country: FR (occurrence: FR)
  Receive Date: 20181221
  Receipt Date: 20181221
  Transmission Date: 20190205
  Serious: Yes (Other)
  Sender: FDA-Public Use
  Company Number: FR-SUN PHARMACEUTICAL INDUSTRIES LTD-2018RR-194201

PATIENT
  Age: 39 Year
  Sex: Female
  Weight: 103 kg

DRUGS (7)
  1. FUMAFER [Suspect]
     Active Substance: FERROUS FUMARATE
     Indication: IRON DEFICIENCY
     Dosage: 1 DOSAGE FORM, DAILY
     Route: 048
  2. PROPRANOLOL [Suspect]
     Active Substance: PROPRANOLOL HYDROCHLORIDE
     Indication: PRODUCT USED FOR UNKNOWN INDICATION
     Dosage: 80 MILLIGRAM, DAILY
     Route: 048
  3. VENLAFAXINE [Suspect]
     Active Substance: VENLAFAXINE HYDROCHLORIDE
     Indication: PRODUCT USED FOR UNKNOWN INDICATION
     Dosage: 1 DOSAGE FORM, DAILY
     Route: 048
     Dates: start: 2008
  4. LEVOTHYROX 100 MICROGRAMMES, COMPRIME SECABLE [Suspect]
     Active Substance: LEVOTHYROXINE
     Indication: HYPOTHYROIDISM
     Dosage: 1 DOSAGE FORM, DAILY
     Route: 048
     Dates: start: 2018
  5. DOLIPRANEVITAMINEC [Suspect]
     Active Substance: ACETAMINOPHEN\ASCORBIC ACID
     Indication: PRODUCT USED FOR UNKNOWN INDICATION
     Dosage: 3 DOSAGE FORM, DAILY
     Route: 048
  6. SPECIAFOLDINE [Suspect]
     Active Substance: FOLIC ACID
     Indication: VITAMIN SUPPLEMENTATION
     Dosage: 1 DOSAGE FORM, DAILY
     Route: 048
     Dates: start: 20180817
  7. METHOTREXATE. [Suspect]
     Active Substance: METHOTREXATE
     Indication: SARCOIDOSIS
     Dosage: 1 DOSAGE FORM, 1/WEEK
     Route: 058
     Dates: start: 20180817, end: 20181025

REACTIONS (5)
  - Bone pain [Not Recovered/Not Resolved]
  - Headache [Not Recovered/Not Resolved]
  - Vision blurred [Not Recovered/Not Resolved]
  - Depression [Not Recovered/Not Resolved]
  - Arthralgia [Not Recovered/Not Resolved]

NARRATIVE: CASE EVENT DATE: 20181025
